FAERS Safety Report 5015783-X (Version None)
Quarter: 2006Q2

REPORT INFORMATION
  Report Type: 
  Country: None (occurrence: None)
  Receive Date: 20060525
  Receipt Date: 20060503
  Transmission Date: 20061013
  Serious: Yes (Hospitalization)
  Sender: FDA-Public Use
  Company Number: FR200602000101

PATIENT
  Age: 79 Year
  Sex: Female
  Weight: 54 kg

DRUGS (6)
  1. FORTEO [Suspect]
     Indication: OSTEOPOROSIS
     Dosage: 20UG, DAILY (1/D), SUBCUTANEOUS
     Route: 058
     Dates: start: 20051109
  2. FORTEO PEN (250MCG/ML) (FORTEO PEN 250MCG/ML (2ML)) PEN, DISPOSABLE [Concomitant]
  3. COVERSYL (PERINDOPRIL) [Concomitant]
  4. SECTRAL [Concomitant]
  5. OROCAL D(3) (CALCIUM CARBONATE, COLECALCIFEROL) [Concomitant]
  6. LORAZEPAM [Concomitant]

REACTIONS (4)
  - AORTIC STENOSIS [None]
  - APHASIA [None]
  - HYPERCHOLESTEROLAEMIA [None]
  - ISCHAEMIC STROKE [None]
